FAERS Safety Report 15634791 (Version 1)
Quarter: 2018Q4

REPORT INFORMATION
  Report Type: Spontaneous
  Country: NL (occurrence: NL)
  Receive Date: 20181119
  Receipt Date: 20181119
  Transmission Date: 20190205
  Serious: Yes (Other)
  Sender: FDA-Public Use
  Company Number: PHHY2018NL139608

PATIENT
  Age: 14 Week
  Sex: Male
  Weight: 4.9 kg

DRUGS (4)
  1. DICLOFENAC [Suspect]
     Active Substance: DICLOFENAC
     Indication: EXPOSURE VIA BREAST MILK
     Dosage: UNK
     Route: 063
  2. DICLOFENAC [Suspect]
     Active Substance: DICLOFENAC
     Indication: PAIN
     Dosage: 1X AN ORALE PIL
     Route: 063
  3. DICLOFENAC [Suspect]
     Active Substance: DICLOFENAC
     Indication: EXPOSURE VIA BREAST MILK
     Dosage: UNK
     Route: 063
  4. DICLOFENAC [Suspect]
     Active Substance: DICLOFENAC
     Indication: PAIN
     Dosage: 25 MG/ML, UNK (1 SYRINGE IN PAIN ATTACK)
     Route: 063
     Dates: start: 20180825

REACTIONS (3)
  - Exposure via breast milk [Unknown]
  - Haematochezia [Recovered/Resolved]
  - Abdominal pain [Recovering/Resolving]

NARRATIVE: CASE EVENT DATE: 20180828
